FAERS Safety Report 8919355 (Version 1)
Quarter: 2012Q4

REPORT INFORMATION
  Report Type: Spontaneous
  Country: FR (occurrence: None)
  Receive Date: 20121114
  Receipt Date: 20121114
  Transmission Date: 20130627
  Serious: Yes (Hospitalization)
  Sender: FDA-Public Use
  Company Number: DSA_60815_2012

PATIENT
  Age: 77 Year
  Sex: Male

DRUGS (18)
  1. FLAGYL [Suspect]
     Indication: MENINGITIS
     Route: 042
     Dates: start: 20120409, end: 20120413
  2. ZYVOXID [Suspect]
     Indication: MENINGITIS
     Route: 042
     Dates: start: 20120416, end: 20120424
  3. AMOXICILLIN (AMOXICILLIN) [Suspect]
     Indication: MENINGITIS
     Route: 042
     Dates: start: 20120416, end: 20120422
  4. MEROPENEM (MEROPENEM) [Suspect]
     Indication: MENINGITIS
     Route: 042
     Dates: start: 20120409, end: 20120413
  5. VANCOMYCIN [Suspect]
     Indication: MENINGITIS
     Route: 042
     Dates: start: 20120409, end: 20120416
  6. LOVENOX [Concomitant]
  7. CLAFORAN [Concomitant]
  8. INEXIUM [Concomitant]
  9. TRANSIPEG [Concomitant]
  10. FERROUS SULFATE [Concomitant]
  11. SPECIAFOLDINE [Concomitant]
  12. GAVISCON [Concomitant]
  13. DIFFU K [Concomitant]
  14. GENTAMICIN [Concomitant]
  15. ROCEPHINE [Concomitant]
  16. FOSFOMYCIN [Concomitant]
  17. AUGMENTIN [Concomitant]
  18. GENTAMICIN [Concomitant]

REACTIONS (5)
  - Purpura [None]
  - Rash maculo-papular [None]
  - Urticaria [None]
  - Rash generalised [None]
  - Anaemia [None]
